FAERS Safety Report 5329788-2 (Version None)
Quarter: 2007Q2

REPORT INFORMATION
  Report Type: 
  Country: None (occurrence: None)
  Receive Date: 20070521
  Receipt Date: 20070509
  Transmission Date: 20071010
  Serious: Yes (Other)
  Sender: FDA-Public Use
  Company Number: BE-AMGEN-US224992

PATIENT
  Age: 54 Year
  Sex: Female
  Weight: 78 kg

DRUGS (5)
  1. ENBREL [Suspect]
     Indication: PSORIATIC ARTHROPATHY
     Route: 058
     Dates: start: 20040323, end: 20061201
  2. ENBREL [Suspect]
     Route: 058
     Dates: start: 20061231
  3. ARAVA [Suspect]
     Indication: RHEUMATOID ARTHRITIS
     Dosage: NOT PROVIDED
     Route: 048
     Dates: start: 20000101, end: 20010501
  4. ARAVA [Suspect]
     Dosage: NOT PROVIDED
     Route: 048
     Dates: end: 20061201
  5. ZYRTEC [Concomitant]
     Route: 048
     Dates: start: 20060911

REACTIONS (2)
  - PYREXIA [None]
  - WEIGHT DECREASED [None]
